FAERS Safety Report 7084368-6 (Version None)
Quarter: 2010Q4

REPORT INFORMATION
  Report Type: 
  Country: None (occurrence: None)
  Receive Date: 20101104
  Receipt Date: 20101026
  Transmission Date: 20110411
  Serious: Yes (Other)
  Sender: FDA-Public Use
  Company Number: NO-PFIZER INC-2010125769

PATIENT
  Age: 51 Year
  Sex: Male

DRUGS (5)
  1. ZOLOFT [Suspect]
     Indication: DEPRESSION
     Dosage: 25 MG, UNK
     Dates: start: 20100911, end: 20100911
  2. ZOLOFT [Suspect]
     Indication: ANXIETY
  3. SOBRIL [Concomitant]
     Indication: ANXIETY
     Dosage: 25 MG, AS NEEDED
  4. REMERON [Concomitant]
     Indication: DEPRESSION
     Dosage: 30 MG, UNK
  5. REMERON [Concomitant]
     Indication: ANXIETY

REACTIONS (3)
  - DIZZINESS [None]
  - FEELING ABNORMAL [None]
  - SYNCOPE [None]
